FAERS Safety Report 12815566 (Version 2)
Quarter: 2016Q4

REPORT INFORMATION
  Report Type: Spontaneous
  Country: US (occurrence: US)
  Receive Date: 20161005
  Receipt Date: 20161007
  Transmission Date: 20170207
  Serious: Yes (Death, Hospitalization, Other)
  Sender: FDA-Public Use
  Company Number: US-JNJFOC-20161000916

PATIENT
  Sex: Male

DRUGS (18)
  1. DIFLUCAN [Concomitant]
     Active Substance: FLUCONAZOLE
     Route: 048
  2. ALDACTONE [Concomitant]
     Active Substance: SPIRONOLACTONE
     Route: 048
  3. PRILOSEC [Concomitant]
     Active Substance: OMEPRAZOLE MAGNESIUM
     Route: 048
  4. LOMOTIL [Concomitant]
     Active Substance: ATROPINE SULFATE\DIPHENOXYLATE HYDROCHLORIDE
     Indication: DIARRHOEA
     Route: 065
  5. STIVARGA [Suspect]
     Active Substance: REGORAFENIB
     Indication: SMALL INTESTINE CARCINOMA
     Route: 048
     Dates: start: 20160614, end: 20160624
  6. INFLAMASE FORTE [Concomitant]
     Active Substance: PREDNISOLONE SODIUM PHOSPHATE
     Dosage: APPLY 1 DROP TO BOTH EYES FOUR TIMES DAILY
     Route: 065
  7. AVODART [Concomitant]
     Active Substance: DUTASTERIDE
     Route: 048
  8. CALCIUM +D3 [Concomitant]
     Active Substance: CALCIUM\CHOLECALCIFEROL
     Route: 065
  9. EMLA [Concomitant]
     Active Substance: LIDOCAINE\PRILOCAINE
     Route: 065
  10. VITAMIN B6 [Concomitant]
     Active Substance: PYRIDOXINE HYDROCHLORIDE
     Route: 048
  11. CELEXA [Concomitant]
     Active Substance: CITALOPRAM HYDROBROMIDE
     Route: 048
  12. FLOMAX [Concomitant]
     Active Substance: TAMSULOSIN HYDROCHLORIDE
     Route: 048
  13. XARELTO [Suspect]
     Active Substance: RIVAROXABAN
     Indication: PULMONARY EMBOLISM
     Route: 048
  14. ZYRTEC [Concomitant]
     Active Substance: CETIRIZINE HYDROCHLORIDE
     Route: 048
  15. REGLAN [Concomitant]
     Active Substance: METOCLOPRAMIDE HYDROCHLORIDE
     Dosage: TAKE TABLET AT MEALS AND AT BED TIME
     Route: 048
  16. NYSTOP [Concomitant]
     Active Substance: NYSTATIN
     Route: 065
  17. PROPAFENONE. [Concomitant]
     Active Substance: PROPAFENONE
     Route: 048
  18. CARAFATE [Concomitant]
     Active Substance: SUCRALFATE
     Route: 048

REACTIONS (16)
  - Conjunctival hyperaemia [Unknown]
  - Photophobia [Unknown]
  - Malignant ascites [Unknown]
  - Ataxia [Unknown]
  - Oesophageal pain [Unknown]
  - Nausea [Unknown]
  - Urine output decreased [Unknown]
  - Small intestine carcinoma [Unknown]
  - Dizziness [Unknown]
  - Eye discharge [Unknown]
  - Death [Fatal]
  - Tongue coated [Unknown]
  - Groin infection [Unknown]
  - Pulmonary embolism [Unknown]
  - Weight decreased [Unknown]
  - Vomiting [Unknown]
